FAERS Safety Report 14241359 (Version 3)
Quarter: 2017Q4

REPORT INFORMATION
  Report Type: Report from Study
  Country: None (occurrence: CA)
  Receive Date: 20171130
  Receipt Date: 20171203
  Transmission Date: 20180321
  Serious: Yes (Other)
  Sender: FDA-Public Use
  Company Number: CA-ABBVIE-17K-028-2178398-00

PATIENT
  Sex: Female

DRUGS (1)
  1. HUMIRA [Suspect]
     Active Substance: ADALIMUMAB
     Indication: HIDRADENITIS
     Route: 058
     Dates: start: 20170816

REACTIONS (2)
  - Skin infection [Unknown]
  - Hidradenitis [Unknown]

NARRATIVE: CASE EVENT DATE: 2017
